FAERS Safety Report 7869453-0 (Version None)
Quarter: 2011Q4

REPORT INFORMATION
  Report Type: 
  Country: None (occurrence: None)
  Receive Date: 20111028
  Receipt Date: 20111028
  Transmission Date: 20120403
  Serious: Yes (Other)
  Sender: FDA-Public Use
  Company Number: None

PATIENT
  Sex: Female
  Weight: 44.18 kg

DRUGS (6)
  1. CALCIUM/VITAMIN D [Concomitant]
  2. POTASSIUM CHLORIDE [Concomitant]
  3. FERROUS SULFATE TAB [Concomitant]
  4. REMICADE [Suspect]
     Indication: INFLAMMATORY BOWEL DISEASE
     Dosage: 450 MG IV
     Route: 042
     Dates: start: 20110914
  5. REMICADE [Suspect]
     Indication: INFLAMMATORY BOWEL DISEASE
     Dosage: 440 MG 0 4 WEEKS IV
     Route: 042
     Dates: start: 20110818
  6. VANCOMYCIN [Concomitant]

REACTIONS (10)
  - COUGH [None]
  - TINNITUS [None]
  - HEADACHE [None]
  - DYSPNOEA [None]
  - FLUSHING [None]
  - WHEEZING [None]
  - SWELLING FACE [None]
  - THROAT IRRITATION [None]
  - EAR DISCOMFORT [None]
  - INFUSION RELATED REACTION [None]
